FAERS Safety Report 6105998-1 (Version None)
Quarter: 2009Q1

REPORT INFORMATION
  Report Type: 
  Country: None (occurrence: None)
  Receive Date: 20090306
  Receipt Date: 20090306
  Transmission Date: 20090719
  Serious: No
  Sender: FDA-Public Use
  Company Number: None

PATIENT
  Sex: Male
  Weight: 72.5755 kg

DRUGS (8)
  1. LABETALOL HCL [Suspect]
     Indication: CORONARY ARTERY OCCLUSION
     Dosage: SEE IMAGE
     Dates: start: 20090121
  2. LABETALOL HCL [Suspect]
     Indication: STENT PLACEMENT
     Dosage: SEE IMAGE
     Dates: start: 20090121
  3. ASPIRIN [Concomitant]
  4. AMLODIPINE [Concomitant]
  5. CLONIDINE [Concomitant]
  6. ISOSORBIDE MONONITRATE [Concomitant]
  7. LABETROL [Concomitant]
  8. PLAVIX [Concomitant]

REACTIONS (4)
  - BLOOD GLUCOSE INCREASED [None]
  - ONYCHOMADESIS [None]
  - RASH [None]
  - VASCULAR OCCLUSION [None]
